FAERS Safety Report 10368541 (Version 2)
Quarter: 2014Q3

REPORT INFORMATION
  Report Type: Spontaneous
  Country: US (occurrence: US)
  Receive Date: 20140807
  Receipt Date: 20140827
  Transmission Date: 20150326
  Serious: Yes (Hospitalization)
  Sender: FDA-Public Use
  Company Number: US-GLAXOSMITHKLINE-A1083380A

PATIENT
  Age: 78 Year
  Sex: Male

DRUGS (9)
  1. PRANDIN [Concomitant]
     Active Substance: REPAGLINIDE
  2. ADVAIR HFA [Suspect]
     Active Substance: FLUTICASONE PROPIONATE\SALMETEROL XINAFOATE
     Indication: ASTHMA
     Dosage: 1PUFF TWICE PER DAY
     Route: 055
  3. PROVENTIL [Suspect]
     Active Substance: ALBUTEROL
     Indication: ASTHMA
     Dosage: 1PUFF AS REQUIRED
     Route: 065
  4. JANUVIA [Concomitant]
     Active Substance: SITAGLIPTIN PHOSPHATE
  5. STARLIX [Concomitant]
     Active Substance: NATEGLINIDE
  6. LOVASTATIN. [Concomitant]
     Active Substance: LOVASTATIN
  7. VALIUM [Concomitant]
     Active Substance: DIAZEPAM
  8. VENTOLIN [Suspect]
     Active Substance: ALBUTEROL SULFATE
     Indication: ASTHMA
     Dosage: 1PUFF AS REQUIRED
     Route: 055
  9. BISOPROLOL [Concomitant]
     Active Substance: BISOPROLOL

REACTIONS (8)
  - Drug ineffective [Unknown]
  - Arthropathy [Unknown]
  - Disability [Not Recovered/Not Resolved]
  - Cough [Unknown]
  - Ill-defined disorder [Unknown]
  - Lung disorder [Recovered/Resolved]
  - Drug administration error [Unknown]
  - Respiratory disorder [Unknown]

NARRATIVE: CASE EVENT DATE: 1996
